FAERS Safety Report 5671441-X (Version None)
Quarter: 2008Q1

REPORT INFORMATION
  Report Type: 
  Country: None (occurrence: None)
  Receive Date: 20080318
  Receipt Date: 20080313
  Transmission Date: 20080703
  Serious: Yes (Other)
  Sender: FDA-Public Use
  Company Number: IT-ABBOTT-08P-083-0442347-00

PATIENT
  Age: 40 Year
  Sex: Male

DRUGS (1)
  1. ERYTHROMYCIN [Suspect]
     Indication: PERTUSSIS IDENTIFICATION TEST
     Route: 048

REACTIONS (2)
  - NAIL DISCOLOURATION [None]
  - TONGUE BLACK HAIRY [None]
